FAERS Safety Report 5600818-3 (Version None)
Quarter: 2008Q1

REPORT INFORMATION
  Report Type: 
  Country: None (occurrence: None)
  Receive Date: 20080123
  Receipt Date: 20080111
  Transmission Date: 20080703
  Serious: Yes (Other)
  Sender: FDA-Public Use
  Company Number: US-PFIZER INC-2008004653

PATIENT
  Age: 38 Year
  Sex: Female

DRUGS (4)
  1. GABAPENTIN [Suspect]
  2. LYRICA [Suspect]
  3. CYMBALTA [Suspect]
  4. DRUG, UNSPECIFIED [Suspect]

REACTIONS (4)
  - CATARACT [None]
  - EYE DISORDER [None]
  - UNEVALUABLE EVENT [None]
  - VISUAL DISTURBANCE [None]
